FAERS Safety Report 18260724 (Version 6)
Quarter: 2021Q1

REPORT INFORMATION
  Report Type: Spontaneous
  Country: BE (occurrence: BE)
  Receive Date: 20200914
  Receipt Date: 20210108
  Transmission Date: 20210419
  Serious: Yes (Hospitalization, Other)
  Sender: FDA-Public Use
  Company Number: BE-ABBVIE-20K-013-3562129-00

PATIENT
  Age: 68 Year
  Sex: Male
  Weight: 120.9 kg

DRUGS (27)
  1. COLCHICINE. [Concomitant]
     Active Substance: COLCHICINE
     Indication: GOUT
     Dosage: 1?2X/D
     Route: 065
     Dates: start: 20200713, end: 20200717
  2. ALDACTONE [Suspect]
     Active Substance: SPIRONOLACTONE
     Indication: HYPERTENSION
     Route: 065
     Dates: start: 20191217, end: 20200908
  3. MONURIL [Concomitant]
     Active Substance: FOSFOMYCIN TROMETHAMINE
     Indication: URINARY TRACT INFECTION
     Dosage: 3 G, 1X
     Route: 065
     Dates: start: 20200720, end: 20200720
  4. CLOPIDOGREL EG [Concomitant]
     Indication: ARTERIAL THROMBOSIS
     Route: 065
     Dates: start: 20200714, end: 20200724
  5. PANTOMED [Concomitant]
     Indication: GASTROOESOPHAGEAL REFLUX DISEASE
     Dosage: 1?2X/D
     Route: 065
     Dates: start: 20200719, end: 20200908
  6. SIMVASTATIN SANDOZ [Concomitant]
     Active Substance: SIMVASTATIN
     Indication: HYPERCHOLESTEROLAEMIA
     Route: 065
  7. AMLOR [Concomitant]
     Active Substance: AMLODIPINE BESYLATE
     Indication: PRODUCT USED FOR UNKNOWN INDICATION
     Route: 065
  8. ZYLORIC [Suspect]
     Active Substance: ALLOPURINOL
     Indication: NEPHROLITHIASIS
     Route: 065
     Dates: start: 20200713
  9. PENTASA [Concomitant]
     Active Substance: MESALAMINE
     Indication: COLITIS ULCERATIVE
     Dosage: 2 GRAM SACHET, ONE EACH
     Route: 065
     Dates: start: 20200709
  10. GLIMEPIRIDE EG [Concomitant]
     Indication: DIABETES MELLITUS
     Route: 065
     Dates: start: 20181011
  11. FOLAVIT [Concomitant]
     Active Substance: FOLIC ACID
     Indication: FOLATE DEFICIENCY
     Route: 065
     Dates: start: 20200817
  12. BURINEX [Concomitant]
     Active Substance: BUMETANIDE
     Indication: OEDEMA
     Dosage: 2 MG/4 ML, 1 X
     Route: 065
     Dates: start: 20200726, end: 20200726
  13. BISOPROLOL EG [Concomitant]
     Active Substance: BISOPROLOL
     Dosage: ADDITIONAL 2.5 MILLIGRAM
     Route: 065
  14. HUMIRA [Suspect]
     Active Substance: ADALIMUMAB
     Indication: COLITIS ULCERATIVE
     Route: 058
  15. COVERSYL [Concomitant]
     Active Substance: PERINDOPRIL
     Indication: HYPERTENSION
     Route: 065
     Dates: start: 20190211
  16. HUMIRA [Suspect]
     Active Substance: ADALIMUMAB
     Route: 058
  17. COVERSYL [Concomitant]
     Active Substance: PERINDOPRIL
     Indication: CARDIAC FAILURE
     Route: 065
  18. BISOPROLOL EG [Concomitant]
     Active Substance: BISOPROLOL
     Indication: HYPERTENSION
     Route: 065
     Dates: start: 20181006
  19. XULTOPHY 100/3.6 [Concomitant]
     Active Substance: INSULIN DEGLUDEC\LIRAGLUTIDE
     Indication: PRODUCT USED FOR UNKNOWN INDICATION
     Dosage: 16 UNITS
     Route: 065
  20. OZEMPIC [Concomitant]
     Active Substance: SEMAGLUTIDE
     Indication: DIABETES MELLITUS
     Route: 058
     Dates: start: 20190709
  21. COVERSYL [Concomitant]
     Active Substance: PERINDOPRIL
     Indication: PRODUCT USED FOR UNKNOWN INDICATION
  22. INSULIN [Concomitant]
     Active Substance: INSULIN NOS
     Indication: DIABETES MELLITUS
  23. METFORMIN [Suspect]
     Active Substance: METFORMIN HYDROCHLORIDE
     Indication: DIABETES MELLITUS
     Dosage: UNKNOWN
     Route: 065
  24. IMRALDI [Suspect]
     Active Substance: ADALIMUMAB
     Indication: COLITIS ULCERATIVE
     Route: 058
     Dates: start: 20191209, end: 20200817
  25. XANAX [Concomitant]
     Active Substance: ALPRAZOLAM
     Indication: INSOMNIA
     Dosage: 1X/D; INTERMITTENT
     Route: 065
     Dates: start: 20200718, end: 20200813
  26. METFORMAX [Concomitant]
     Active Substance: METFORMIN HYDROCHLORIDE
     Indication: DIABETES MELLITUS
     Route: 065
     Dates: start: 20190621
  27. ALDACTONE [Suspect]
     Active Substance: SPIRONOLACTONE
     Indication: RENAL FAILURE
     Route: 065

REACTIONS (36)
  - Hypoalbuminaemia [Unknown]
  - Ventricular tachycardia [Unknown]
  - Cardiomyopathy [Not Recovered/Not Resolved]
  - Nephrolithiasis [Unknown]
  - Tricuspid valve incompetence [Not Recovered/Not Resolved]
  - Gastrointestinal haemorrhage [Unknown]
  - Hyperphosphataemia [Recovered/Resolved]
  - Lymphoma [Unknown]
  - Thrombocytopenia [Recovered/Resolved]
  - Vitamin D deficiency [Unknown]
  - Dyspnoea [Recovered/Resolved]
  - Cough [Recovered/Resolved]
  - Acute kidney injury [Recovered/Resolved with Sequelae]
  - Vomiting [Recovered/Resolved]
  - Ulcer haemorrhage [Unknown]
  - Hypocalcaemia [Recovered/Resolved]
  - Ventricular extrasystoles [Not Recovered/Not Resolved]
  - Lung hernia [Unknown]
  - Diarrhoea [Recovered/Resolved]
  - Cardiac neoplasm unspecified [Recovered/Resolved]
  - Hyperkalaemia [Recovered/Resolved]
  - Metabolic acidosis [Unknown]
  - Streptococcal sepsis [Recovered/Resolved]
  - Urinary tract obstruction [Unknown]
  - Small intestinal haemorrhage [Unknown]
  - Gastric haemorrhage [Unknown]
  - Diverticulum [Unknown]
  - Anaemia [Not Recovered/Not Resolved]
  - Hydronephrosis [Recovered/Resolved]
  - Product substitution issue [Unknown]
  - Duodenal ulcer [Unknown]
  - Drug level increased [Unknown]
  - Asthenia [Recovered/Resolved]
  - Chronic kidney disease [Unknown]
  - Vasculitis [Unknown]
  - Erosive duodenitis [Unknown]

NARRATIVE: CASE EVENT DATE: 202006
